FAERS Safety Report 8907641 (Version 1)
Quarter: 2012Q4

REPORT INFORMATION
  Report Type: 
  Country: SE (occurrence: SE)
  Receive Date: 20121114
  Receipt Date: 20121114
  Transmission Date: 20130627
  Serious: Yes (Hospitalization)
  Sender: FDA-Public Use
  Company Number: SE-B.I. PHARMACEUTICALS,INC./RIDGEFIELD-2012-SW-00826SW

PATIENT
  Age: 78 Year
  Sex: Male

DRUGS (9)
  1. PRADAXA [Suspect]
     Indication: CEREBRAL ARTERY EMBOLISM
     Dosage: 300 mg
     Route: 048
     Dates: start: 20120514, end: 20120815
  2. PRADAXA [Suspect]
     Indication: HYPERTENSION
  3. LIPITOR [Concomitant]
     Dosage: Formulation: film-coated tablet
  4. RAMIPRIL ACTAVIS [Concomitant]
     Dosage: Strength: 10 mg
  5. KALCIPOS-D FORTE [Concomitant]
     Dosage: Formulation: film-coated tablet
  6. FORLAX [Concomitant]
  7. FURIX [Concomitant]
  8. SELOKENZOC [Concomitant]
     Dosage: Formulation: prolonged-release tablet
  9. IMDUR [Concomitant]
     Dosage: Formulation: prolonged-release tablet

REACTIONS (1)
  - Renal failure acute [Not Recovered/Not Resolved]
